FAERS Safety Report 8977830 (Version 2)
Quarter: 2013Q1

REPORT INFORMATION
  Report Type: Spontaneous
  Country: US (occurrence: US)
  Receive Date: 20121220
  Receipt Date: 20130227
  Transmission Date: 20140127
  Serious: No
  Sender: FDA-Public Use
  Company Number: US-PFIZER INC-2012320008

PATIENT
  Sex: Female

DRUGS (1)
  1. COLESTIPOL HCL [Suspect]
     Indication: GALLBLADDER DISORDER
     Dosage: UNK

REACTIONS (1)
  - Drug ineffective for unapproved indication [Unknown]
